FAERS Safety Report 20330204 (Version 2)
Quarter: 2022Q3

REPORT INFORMATION
  Report Type: Spontaneous
  Country: FR (occurrence: FR)
  Receive Date: 20220113
  Receipt Date: 20220916
  Transmission Date: 20221027
  Serious: Yes (Hospitalization)
  Sender: FDA-Public Use
  Company Number: FR-AFSSAPS-AM20213382

PATIENT
  Age: 74 Year
  Sex: Male

DRUGS (4)
  1. ROSUVASTATIN [Suspect]
     Active Substance: ROSUVASTATIN
     Indication: Dyslipidaemia
     Dosage: 1 DOSAGE FORM, QOD, 1CP 1DAY / 2
     Route: 048
     Dates: start: 2011
  2. ZOLPIDEM [Suspect]
     Active Substance: ZOLPIDEM TARTRATE
     Indication: Insomnia
     Dosage: 1 DOSAGE FORM, DAILY
     Route: 048
     Dates: start: 2011
  3. VAXZEVRIA [Suspect]
     Active Substance: AZD-1222
     Indication: COVID-19 immunisation
     Dosage: 1 DOSAGE FORM, D2 ; IN TOTAL
     Route: 030
     Dates: start: 20210607, end: 20210607
  4. RIVOTRIL [Suspect]
     Active Substance: CLONAZEPAM
     Indication: Product used for unknown indication
     Dosage: 3 DOSAGE FORM, DAILY, 3 DROPS / DAY
     Route: 048

REACTIONS (1)
  - Thrombocytopenia [Not Recovered/Not Resolved]

NARRATIVE: CASE EVENT DATE: 20211012
